FAERS Safety Report 10061410 (Version 1)
Quarter: 2014Q2

REPORT INFORMATION
  Report Type: Spontaneous
  Country: US (occurrence: US)
  Receive Date: 20140407
  Receipt Date: 20140407
  Transmission Date: 20141212
  Serious: Yes (Hospitalization)
  Sender: FDA-Public Use
  Company Number: US-BAYER-2014-049876

PATIENT
  Age: 38 Year
  Sex: Female

DRUGS (4)
  1. YAZ [Suspect]
  2. DILAUDID [Concomitant]
  3. LORTAB [Concomitant]
     Indication: PAIN
  4. VERAPAMIL [Concomitant]
     Indication: MIGRAINE

REACTIONS (2)
  - Pulmonary embolism [None]
  - Deep vein thrombosis [None]
